FAERS Safety Report 4956313-8 (Version None)
Quarter: 2006Q1

REPORT INFORMATION
  Report Type: 
  Country: None (occurrence: None)
  Receive Date: 20060323
  Receipt Date: 20060310
  Transmission Date: 20060701
  Serious: Yes (Other)
  Sender: FDA-Public Use
  Company Number: 2006035358

PATIENT
  Age: 62 Year
  Sex: Male
  Weight: 79.3795 kg

DRUGS (5)
  1. CELEBREX [Suspect]
     Indication: SCIATICA
     Dosage: ORAL
     Route: 048
     Dates: start: 20051001
  2. NEURONTIN [Suspect]
     Indication: BONE PAIN
     Dosage: 900 MG (300 MG, 2 IN 1 D), ORAL
     Route: 048
     Dates: start: 20060101
  3. ANTIHYPERTENSIVES (ANTIHYPERTENSIVES) [Concomitant]
  4. STATINS (HMG COA REDUCTASE INHIBITORS) [Concomitant]
  5. ALL OTHER THERAPEUTIC PRODUCTS (ALL OTHER THERAPEUTIC PRODUCTS) [Concomitant]

REACTIONS (5)
  - INTERVERTEBRAL DISC DISORDER [None]
  - OEDEMA PERIPHERAL [None]
  - PAIN [None]
  - PROSTATE EXAMINATION ABNORMAL [None]
  - SPINAL COLUMN STENOSIS [None]
